FAERS Safety Report 4285017-2 (Version None)
Quarter: 2004Q1

REPORT INFORMATION
  Report Type: 
  Country: None (occurrence: None)
  Receive Date: 20040204
  Receipt Date: 20030725
  Transmission Date: 20041129
  Serious: Yes (Other)
  Sender: FDA-Public Use
  Company Number: WAES 0307USA03148

PATIENT
  Age: 12 Year
  Sex: Female
  Weight: 23 kg

DRUGS (1)
  1. SINGULAIR [Suspect]
     Indication: ASTHMA
     Dates: start: 20021101, end: 20030725

REACTIONS (1)
  - URINARY RETENTION [None]
